FAERS Safety Report 14486184 (Version 3)
Quarter: 2018Q2

REPORT INFORMATION
  Report Type: Spontaneous
  Country: CA (occurrence: CA)
  Receive Date: 20180205
  Receipt Date: 20180625
  Transmission Date: 20180711
  Serious: Yes (Hospitalization, Other)
  Sender: FDA-Public Use
  Company Number: CA-PFIZER INC-2018049323

PATIENT
  Sex: Female
  Weight: 69.39 kg

DRUGS (2)
  1. PANTOPRAZOLE [Suspect]
     Active Substance: PANTOPRAZOLE
     Dosage: UNK
     Route: 065
  2. OMNIPAQUE [Suspect]
     Active Substance: IOHEXOL
     Dosage: 80 ML, QD
     Route: 042
     Dates: start: 20170914

REACTIONS (6)
  - Erythema [Unknown]
  - Hypotension [Unknown]
  - Oedema mouth [Unknown]
  - Anaphylactic shock [Unknown]
  - Vomiting [Unknown]
  - Hot flush [Unknown]

NARRATIVE: CASE EVENT DATE: 20170914
